FAERS Safety Report 9131201 (Version 2)
Quarter: 2013Q1

REPORT INFORMATION
  Report Type: Spontaneous
  Country: MY (occurrence: MY)
  Receive Date: 20130301
  Receipt Date: 20130306
  Transmission Date: 20140127
  Serious: Yes (Life-Threatening, Hospitalization, Other)
  Sender: FDA-Public Use
  Company Number: PHHY2013MY019348

PATIENT
  Age: 9 Year
  Sex: Female

DRUGS (1)
  1. CARBAMAZEPINE [Suspect]
     Indication: EPILEPSY
     Dosage: 100 MG, DAILY
     Dates: start: 20130209, end: 20130226

REACTIONS (4)
  - Stevens-Johnson syndrome [Recovering/Resolving]
  - Oral disorder [Recovering/Resolving]
  - Mouth ulceration [Recovering/Resolving]
  - Rash [Recovering/Resolving]
